FAERS Safety Report 15663574 (Version 1)
Quarter: 2018Q4

REPORT INFORMATION
  Report Type: Spontaneous
  Country: CA (occurrence: CA)
  Receive Date: 20181128
  Receipt Date: 20181128
  Transmission Date: 20190205
  Serious: Yes (Other)
  Sender: FDA-Public Use
  Company Number: CA-TEVA-2018-CA-980492

PATIENT
  Age: 83 Year
  Sex: Female
  Weight: 102 kg

DRUGS (23)
  1. CITALOPRAM [Suspect]
     Active Substance: CITALOPRAM HYDROBROMIDE
     Indication: ANXIETY
     Dosage: 20 MILLIGRAM DAILY;
     Route: 048
  2. JAMP-VITAMIN D [Concomitant]
  3. APO-BROMAZEPAM - TAB 1.5 MG [Concomitant]
  4. HUMULIN R CARTRIDGE [Concomitant]
  5. PALAFER [Concomitant]
     Active Substance: FERROUS FUMARATE
  6. PREMARIN [Concomitant]
     Active Substance: ESTROGENS, CONJUGATED
  7. ASA [Concomitant]
     Active Substance: ASPIRIN
     Route: 065
  8. ATENOLOL TABLETS, BP [Concomitant]
     Active Substance: ATENOLOL
  9. COVERSYL PLUS [Concomitant]
     Active Substance: INDAPAMIDE\PERINDOPRIL
  10. LIPITOR [Concomitant]
     Active Substance: ATORVASTATIN CALCIUM
  11. METFORMIN [Concomitant]
     Active Substance: METFORMIN HYDROCHLORIDE
  12. MYRBETRIQ [Concomitant]
     Active Substance: MIRABEGRON
  13. PANTOLOC [Concomitant]
     Active Substance: PANTOPRAZOLE SODIUM
  14. SYNTHROID [Concomitant]
     Active Substance: LEVOTHYROXINE SODIUM
  15. ACTONEL [Concomitant]
     Active Substance: RISEDRONATE SODIUM
  16. CYMBALTA [Concomitant]
     Active Substance: DULOXETINE HYDROCHLORIDE
  17. CELEXA 20 MG [Concomitant]
  18. GABAPENTIN. [Concomitant]
     Active Substance: GABAPENTIN
  19. LASIX [Concomitant]
     Active Substance: FUROSEMIDE
  20. TYLENOL WITH CODEINE [Concomitant]
     Active Substance: ACETAMINOPHEN\CODEINE PHOSPHATE
  21. CITALOPRAM [Suspect]
     Active Substance: CITALOPRAM HYDROBROMIDE
     Indication: AFFECTIVE DISORDER
  22. LANTUS [Concomitant]
     Active Substance: INSULIN GLARGINE
  23. NORVASC TAB 5MG [Concomitant]

REACTIONS (4)
  - Palpitations [Recovered/Resolved]
  - Chest pain [Recovered/Resolved]
  - Anxiety [Recovered/Resolved]
  - Condition aggravated [Recovered/Resolved]
